FAERS Safety Report 25529753 (Version 1)
Quarter: 2025Q3

REPORT INFORMATION
  Report Type: Spontaneous
  Country: CN (occurrence: CN)
  Receive Date: 20250708
  Receipt Date: 20250708
  Transmission Date: 20251020
  Serious: Yes (Other)
  Sender: GLAXOSMITHKLINE
  Company Number: CN-GLAXOSMITHKLINE INC-CN2025APC081160

PATIENT
  Age: 41 Year
  Sex: Male
  Weight: 50 kg

DRUGS (1)
  1. MEPOLIZUMAB [Suspect]
     Active Substance: MEPOLIZUMAB
     Indication: Asthma
     Dosage: 300 MG, MO

REACTIONS (7)
  - Erythema [Recovering/Resolving]
  - Skin exfoliation [Recovering/Resolving]
  - Lip dry [Recovering/Resolving]
  - Chapped lips [Recovering/Resolving]
  - Pain [Recovering/Resolving]
  - Urticaria [Recovering/Resolving]
  - Product use in unapproved indication [Unknown]

NARRATIVE: CASE EVENT DATE: 20250329
